FAERS Safety Report 11432222 (Version 1)
Quarter: 2015Q3

REPORT INFORMATION
  Report Type: Spontaneous
  Country: US (occurrence: US)
  Receive Date: 20150828
  Receipt Date: 20150828
  Transmission Date: 20151125
  Serious: No
  Sender: FDA-Public Use
  Company Number: US-PFIZER INC-2015275675

PATIENT
  Sex: Female

DRUGS (1)
  1. CHAPSTICK SUN DEFENSE [Suspect]
     Active Substance: OCTINOXATE\OCTISALATE\OCTOCRYLENE\OXYBENZONE\PETROLATUM
     Indication: PHOTOSENSITIVITY REACTION
     Dosage: UNK

REACTIONS (1)
  - Hypersensitivity [Unknown]
